FAERS Safety Report 10709590 (Version 1)
Quarter: 2015Q1

REPORT INFORMATION
  Report Type: Spontaneous
  Country: US (occurrence: None)
  Receive Date: 20150113
  Receipt Date: 20150113
  Transmission Date: 20150721
  Serious: Yes (Other)
  Sender: FDA-Public Use
  Company Number: None

PATIENT
  Age: 73 Year
  Sex: Female
  Weight: 79.83 kg

DRUGS (1)
  1. PROLIA [Suspect]
     Active Substance: DENOSUMAB
     Indication: OSTEOPOROSIS
     Dosage: EVERY 6 MONTHS
     Route: 058
     Dates: start: 20141222

REACTIONS (5)
  - Gingival swelling [None]
  - Gingival pain [None]
  - Hypophagia [None]
  - Periodontitis [None]
  - White blood cell count decreased [None]

NARRATIVE: CASE EVENT DATE: 20141229
